FAERS Safety Report 6384813-5 (Version None)
Quarter: 2009Q4

REPORT INFORMATION
  Report Type: 
  Country: None (occurrence: None)
  Receive Date: 20091001
  Receipt Date: 20090930
  Transmission Date: 20100525
  Serious: Yes (Death)
  Sender: FDA-Public Use
  Company Number: US-ABBOTT-09P-163-0594541-00

PATIENT
  Sex: Female
  Weight: 22 kg

DRUGS (4)
  1. DEPAKOTE [Suspect]
     Indication: CONVULSION
     Dates: start: 20090520, end: 20090706
  2. DEPAKOTE [Suspect]
     Dosage: 1 CAPSULE IN MORNING AND 2 CAPSULES IN AFTERNOON
     Dates: start: 20090707, end: 20090812
  3. DEPAKOTE [Suspect]
     Dates: start: 20090813, end: 20090816
  4. DEPAKOTE [Suspect]
     Dates: start: 20090817, end: 20090819

REACTIONS (7)
  - ANTICONVULSANT DRUG LEVEL DECREASED [None]
  - CARDIAC FAILURE [None]
  - DRUG LEVEL DECREASED [None]
  - HEPATIC HAEMORRHAGE [None]
  - MITOCHONDRIAL CYTOPATHY [None]
  - PANCREATIC HAEMORRHAGE [None]
  - PANCREATITIS [None]
